FAERS Safety Report 7370741-5 (Version None)
Quarter: 2011Q1

REPORT INFORMATION
  Report Type: 
  Country: None (occurrence: None)
  Receive Date: 20110323
  Receipt Date: 20110311
  Transmission Date: 20110831
  Serious: Yes (Hospitalization)
  Sender: FDA-Public Use
  Company Number: US-BRISTOL-MYERS SQUIBB COMPANY-15588999

PATIENT
  Age: 70 Year
  Sex: Male

DRUGS (4)
  1. APIXABAN [Suspect]
     Indication: THROMBOSIS PROPHYLAXIS
     Route: 048
     Dates: start: 20100112, end: 20110210
  2. WARFARIN SODIUM [Suspect]
     Indication: THROMBOSIS PROPHYLAXIS
     Route: 048
     Dates: start: 20100112, end: 20110207
  3. WARFARIN SODIUM [Concomitant]
     Route: 048
  4. BLINDED: PLACEBO [Suspect]
     Indication: THROMBOSIS PROPHYLAXIS
     Dosage: MATCHING APIXABAN PLACEBO:10FEB10 MATCHING WARFARIN PLACEBO:07FEB10
     Route: 048
     Dates: start: 20100112, end: 20110201

REACTIONS (1)
  - CAROTID ARTERY STENOSIS [None]
